FAERS Safety Report 7708826-3 (Version None)
Quarter: 2011Q3

REPORT INFORMATION
  Report Type: 
  Country: None (occurrence: None)
  Receive Date: 20110825
  Receipt Date: 20110811
  Transmission Date: 20111222
  Serious: Yes (Other)
  Sender: FDA-Public Use
  Company Number: DE-UCBSA-017699

PATIENT
  Sex: Female
  Weight: 60 kg

DRUGS (13)
  1. VIMPAT [Suspect]
     Dates: start: 20110615
  2. VIMPAT [Suspect]
     Dosage: 100MG 09:45 (IN THE MORNING) AND 150MG 21:45 (IN THE EVENING)
     Route: 048
     Dates: start: 20110426
  3. CLONAZEPAM [Concomitant]
     Indication: ENCEPHALITIS
     Dosage: PEG ADMINISTRATION
  4. VIMPAT [Suspect]
     Indication: ENCEPHALITIS
     Dosage: PEG ADMINISTRATION
     Dates: start: 20100401, end: 20110425
  5. METOPROLOL SUCCINATE [Concomitant]
     Indication: BLOOD PRESSURE
     Dosage: 47.5 DAILY, PEG ADMINISTRATION
  6. SPIRONOLACTONE [Concomitant]
     Indication: COLLATERAL CIRCULATION
     Dosage: PEG ADMINISTRATION
  7. KEPPRA [Suspect]
     Indication: ENCEPHALITIS
     Dosage: PEG ADMINISTRATION
     Dates: start: 20100101
  8. EUNERPAN [Concomitant]
     Indication: PAIN
     Dosage: PEG ADMINISTRATION
     Dates: end: 20100501
  9. KEPPRA [Suspect]
     Dosage: PEG ADMINISTRATION
  10. KEPPRA [Suspect]
     Dates: start: 20110426
  11. KEPPRA [Suspect]
     Dates: start: 20110615
  12. TORSEMIDE [Concomitant]
     Indication: COLLATERAL CIRCULATION
     Dosage: PEG ADMNISTRATION
  13. NEXIUM [Concomitant]
     Indication: PROPHYLAXIS
     Dosage: SINGLE DOSE 20X2, PEG ADMINISTRATION

REACTIONS (14)
  - GASTROINTESTINAL DISORDER [None]
  - NASAL DISCOMFORT [None]
  - CONVERSION DISORDER [None]
  - AGGRESSION [None]
  - RESTLESSNESS [None]
  - NASAL INFLAMMATION [None]
  - STATUS EPILEPTICUS [None]
  - CONFUSIONAL STATE [None]
  - FOOD AVERSION [None]
  - EYE PAIN [None]
  - SNEEZING [None]
  - CONVULSION [None]
  - SOMNOLENCE [None]
  - SLEEP DISORDER [None]
